FAERS Safety Report 4648083-8 (Version None)
Quarter: 2005Q2

REPORT INFORMATION
  Report Type: 
  Country: None (occurrence: None)
  Receive Date: 20050426
  Receipt Date: 20050412
  Transmission Date: 20051028
  Serious: Yes (Other)
  Sender: FDA-Public Use
  Company Number: 05-000256

PATIENT
  Age: 56 Year
  Sex: Female

DRUGS (7)
  1. DURICEF (CEFADROXIL) CAPSULE, 500MG [Suspect]
     Dosage: 500 MG, QID
     Dates: start: 20020802
  2. OGEN [Suspect]
     Indication: HORMONE REPLACEMENT THERAPY
     Dates: start: 19780101, end: 19890101
  3. ORTHO-EST (ESTROPIPATE) .625MG [Suspect]
     Indication: HORMONE REPLACEMENT THERAPY
     Dosage: 0.625MG MG
     Dates: start: 19890101, end: 19940101
  4. PROVERA [Suspect]
     Indication: HORMONE REPLACEMENT THERAPY
     Dosage: .25MG
     Dates: start: 19890101, end: 19940101
  5. PREMARIN [Suspect]
     Indication: HORMONE REPLACEMENT THERAPY
     Dosage: SEE IMAGE
     Dates: start: 20021001, end: 20030501
  6. PREMARIN [Suspect]
     Indication: HORMONE REPLACEMENT THERAPY
     Dosage: SEE IMAGE
     Dates: start: 19901029
  7. PREMPRO [Suspect]
     Indication: HORMONE REPLACEMENT THERAPY
     Dosage: 0.625 MG, QD
     Dates: start: 19940101, end: 20021001

REACTIONS (1)
  - BREAST CANCER FEMALE [None]
